FAERS Safety Report 20430101 (Version 1)
Quarter: 2022Q1

REPORT INFORMATION
  Report Type: Report from Study
  Country: FR (occurrence: FR)
  Receive Date: 20220204
  Receipt Date: 20220204
  Transmission Date: 20220424
  Serious: Yes (Hospitalization, Other)
  Sender: FDA-Public Use
  Company Number: FR-SERVIER-S20002210

PATIENT

DRUGS (6)
  1. PEGASPARGASE [Suspect]
     Active Substance: PEGASPARGASE
     Indication: Acute lymphocytic leukaemia
     Dosage: 1200 IU, ON D8, D36, D64
     Route: 042
     Dates: start: 20190820, end: 20191025
  2. VINCRISTINE [Suspect]
     Active Substance: VINCRISTINE
     Indication: Acute lymphocytic leukaemia
     Dosage: 1.5 MG, D1, D8, D29, D36, D57
     Route: 042
     Dates: start: 20190813, end: 20191026
  3. MERCAPTOPURINE [Suspect]
     Active Substance: MERCAPTOPURINE
     Indication: Acute lymphocytic leukaemia
     Dosage: 50 MG, D1 TO D21, D29, D49, D57 TO D77
     Route: 048
     Dates: start: 20191026, end: 20191108
  4. METHOTREXATE [Suspect]
     Active Substance: METHOTREXATE
     Indication: Acute lymphocytic leukaemia
     Dosage: 10 MG, ON D1, D8, D15, D21, D29, D36, D43, D50
     Route: 048
     Dates: start: 20190813, end: 20191108
  5. METHOTREXATE [Suspect]
     Active Substance: METHOTREXATE
     Dosage: 12 MG ON D2, D30, D58
     Route: 037
     Dates: start: 20190814, end: 20191021
  6. DEXAMETHASONE [Suspect]
     Active Substance: DEXAMETHASONE
     Indication: Acute lymphocytic leukaemia
     Dosage: 4 MG ON D1 TO D5, D29 TO D33, D57 TO D61)
     Route: 048
     Dates: start: 20190813, end: 20190920

REACTIONS (2)
  - Acinetobacter sepsis [Recovered/Resolved]
  - Hepatic cytolysis [Recovered/Resolved]

NARRATIVE: CASE EVENT DATE: 20190917
